FAERS Safety Report 8801431 (Version 1)
Quarter: 2012Q4

REPORT INFORMATION
  Report Type: 
  Country: IT (occurrence: IT)
  Receive Date: 20120921
  Receipt Date: 20120921
  Transmission Date: 20130627
  Serious: Yes (Hospitalization)
  Sender: FDA-Public Use
  Company Number: IT-FRI-1000038735

PATIENT
  Age: 45 Year
  Sex: Female

DRUGS (5)
  1. NEBIVOLOL [Suspect]
     Indication: HYPERTENSION
     Dosage: 5 mg
     Dates: start: 20080501, end: 20120913
  2. NEBIVOLOL [Suspect]
     Dosage: 2.5 mg
     Dates: start: 20120914
  3. PRITOR [Suspect]
     Indication: HYPERTENSION
     Dosage: 80 mg
     Route: 048
     Dates: start: 20080501, end: 20120913
  4. LIBRADIN [Suspect]
     Indication: HYPERTENSION
     Route: 048
     Dates: start: 20090801, end: 20120913
  5. CARDIOASPIRIN [Concomitant]

REACTIONS (4)
  - Drop attacks [Recovering/Resolving]
  - Syncope [Recovering/Resolving]
  - Blood pressure decreased [None]
  - Incorrect dose administered [None]
